FAERS Safety Report 9336311 (Version 1)
Quarter: 2013Q2

REPORT INFORMATION
  Report Type: Spontaneous
  Country: US (occurrence: US)
  Receive Date: 20130607
  Receipt Date: 20130607
  Transmission Date: 20140414
  Serious: No
  Sender: FDA-Public Use
  Company Number: US-009507513-1305USA010551

PATIENT
  Sex: Male

DRUGS (1)
  1. NEXPLANON [Suspect]
     Dosage: UNK
     Dates: start: 20130515

REACTIONS (4)
  - Injury associated with device [Unknown]
  - Product closure removal difficult [Unknown]
  - Accidental exposure to product [Unknown]
  - No adverse event [Unknown]
